FAERS Safety Report 9913926 (Version 1)
Quarter: 2014Q1

REPORT INFORMATION
  Report Type: Spontaneous
  Country: US (occurrence: None)
  Receive Date: 20140219
  Receipt Date: 20140219
  Transmission Date: 20141002
  Serious: No
  Sender: FDA-Public Use
  Company Number: None

PATIENT
  Age: 61 Year
  Sex: Female
  Weight: 86.18 kg

DRUGS (1)
  1. METFORMIN [Suspect]
     Indication: DIABETES MELLITUS MANAGEMENT
     Dosage: 1 PILL
     Route: 048
     Dates: start: 20140205, end: 20140214

REACTIONS (2)
  - Panic attack [None]
  - Anxiety [None]
